FAERS Safety Report 13302589 (Version 1)
Quarter: 2017Q1

REPORT INFORMATION
  Report Type: Spontaneous
  Country: CA (occurrence: CA)
  Receive Date: 20170307
  Receipt Date: 20170307
  Transmission Date: 20170428
  Serious: Yes (Other)
  Sender: FDA-Public Use
  Company Number: CA-JNJFOC-20170301159

PATIENT
  Sex: Male
  Weight: 102 kg

DRUGS (1)
  1. INVEGA SUSTENNA [Suspect]
     Active Substance: PALIPERIDONE PALMITATE
     Indication: PSYCHIATRIC SYMPTOM
     Route: 030
     Dates: start: 201611, end: 20170216

REACTIONS (4)
  - Somnolence [Not Recovered/Not Resolved]
  - Drug dose omission [Unknown]
  - Self-injurious ideation [Not Recovered/Not Resolved]
  - Off label use [Unknown]

NARRATIVE: CASE EVENT DATE: 2016
